FAERS Safety Report 8460330-3 (Version None)
Quarter: 2012Q2

REPORT INFORMATION
  Report Type: 
  Country: None (occurrence: None)
  Receive Date: 20120323
  Receipt Date: 20111025
  Transmission Date: 20120825
  Serious: Yes (Life-Threatening, Hospitalization)
  Sender: FDA-Public Use
  Company Number: 163-21880-11093226

PATIENT
  Age: 87 Year
  Sex: Male
  Weight: 71.6683 kg

DRUGS (6)
  1. LEVOTHYROXINE SODIUM [Concomitant]
  2. PRESERVISION (PRESERVISION LUTEIN EYE VITA, +MIN.SUP.SOFTG.) [Concomitant]
  3. REVLIMID [Suspect]
  4. REVLIMID [Suspect]
     Indication: CHRONIC LYMPHOCYTIC LEUKAEMIA
     Dosage: 10 MG, DAILY X 21 DAYS, PO, 5 MG, DAILY X 21 DAYS, PO
     Route: 048
     Dates: start: 20110914, end: 20110916
  5. REVLIMID [Suspect]
     Indication: CHRONIC LYMPHOCYTIC LEUKAEMIA
     Dosage: 10 MG, DAILY X 21 DAYS, PO, 5 MG, DAILY X 21 DAYS, PO
     Route: 048
     Dates: start: 20111007, end: 20111010
  6. REVLIMID [Suspect]

REACTIONS (5)
  - INFECTION [None]
  - PYREXIA [None]
  - DISEASE PROGRESSION [None]
  - PNEUMONIA [None]
  - RASH [None]
